FAERS Safety Report 8213378-8 (Version None)
Quarter: 2012Q1

REPORT INFORMATION
  Report Type: 
  Country: None (occurrence: None)
  Receive Date: 20120315
  Receipt Date: 20120307
  Transmission Date: 20120608
  Serious: Yes (Other)
  Sender: FDA-Public Use
  Company Number: CHPA2012US004790

PATIENT
  Sex: Female

DRUGS (1)
  1. VOLTAREN [Suspect]
     Dosage: UNK, UNK
     Route: 065

REACTIONS (7)
  - ROTATOR CUFF SYNDROME [None]
  - NERVE COMPRESSION [None]
  - TREMOR [None]
  - FIBROMYALGIA [None]
  - ARTHROPATHY [None]
  - BONE DISORDER [None]
  - BLINDNESS [None]
